FAERS Safety Report 25449075 (Version 2)
Quarter: 2025Q4

REPORT INFORMATION
  Report Type: Spontaneous
  Country: US (occurrence: US)
  Receive Date: 20250618
  Receipt Date: 20251223
  Transmission Date: 20260119
  Serious: Yes (Other)
  Sender: ROCHE
  Company Number: US-ROCHE-10000312598

PATIENT
  Sex: Female

DRUGS (2)
  1. XOLAIR PFS [Suspect]
     Active Substance: OMALIZUMAB
     Indication: Asthma
     Dosage: 300MG/0.5ML
     Route: 058
     Dates: start: 202204
  2. XOLAIR PFS [Suspect]
     Active Substance: OMALIZUMAB
     Dosage: 75MG/0.5ML
     Route: 058
     Dates: start: 202204

REACTIONS (2)
  - Anaphylactic reaction [Unknown]
  - Product dose omission issue [Unknown]
